FAERS Safety Report 8103422-0 (Version None)
Quarter: 2012Q1

REPORT INFORMATION
  Report Type: 
  Country: None (occurrence: None)
  Receive Date: 20120201
  Receipt Date: 20120124
  Transmission Date: 20120608
  Serious: Yes (Hospitalization, Other)
  Sender: FDA-Public Use
  Company Number: US-ROCHE-1034121

PATIENT
  Sex: Male

DRUGS (2)
  1. PEGINTERFERON ALFA-2A [Suspect]
     Indication: HEPATITIS C
     Dates: start: 20060801, end: 20070201
  2. COPEGUS [Suspect]
     Indication: HEPATITIS C
     Dates: start: 20060801, end: 20070201

REACTIONS (4)
  - BLOOD GLUCOSE DECREASED [None]
  - VIRAL LOAD INCREASED [None]
  - DIZZINESS [None]
  - PARAESTHESIA [None]
